FAERS Safety Report 25466991 (Version 4)
Quarter: 2025Q3

REPORT INFORMATION
  Report Type: Spontaneous
  Country: JP (occurrence: JP)
  Receive Date: 20250623
  Receipt Date: 20250721
  Transmission Date: 20251021
  Serious: Yes (Hospitalization, Other)
  Sender: Vantive US Healthcare
  Company Number: JP-VANTIVE-2025VAN002734

PATIENT
  Age: 7 Decade
  Sex: Male

DRUGS (11)
  1. REGUNEAL HCA [Suspect]
     Active Substance: CALCIUM CHLORIDE\DEXTROSE MONOHYDRATE\HYDROCHLORIC ACID\MAGNESIUM CHLORIDE\SODIUM BICARBONATE\SODIUM
     Indication: Peritoneal dialysis
     Route: 033
     Dates: start: 20250606, end: 20250612
  2. REGUNEAL HCA [Suspect]
     Active Substance: CALCIUM CHLORIDE\DEXTROSE MONOHYDRATE\HYDROCHLORIC ACID\MAGNESIUM CHLORIDE\SODIUM BICARBONATE\SODIUM
     Route: 033
     Dates: start: 20250619
  3. NIFEDIPINE [Suspect]
     Active Substance: NIFEDIPINE
     Route: 065
     Dates: end: 20250611
  4. NIFEDIPINE [Suspect]
     Active Substance: NIFEDIPINE
     Route: 065
     Dates: start: 20250623, end: 20250630
  5. CEFAZOLIN [Suspect]
     Active Substance: CEFAZOLIN
     Indication: Antibiotic prophylaxis
     Route: 065
     Dates: start: 20250605
  6. NIFEDIPINE [Concomitant]
     Active Substance: NIFEDIPINE
     Route: 065
     Dates: end: 20250611
  7. NIFEDIPINE [Concomitant]
     Active Substance: NIFEDIPINE
     Route: 065
     Dates: start: 20250623, end: 20250630
  8. DAPAGLIFLOZIN [Concomitant]
     Active Substance: DAPAGLIFLOZIN
     Route: 065
     Dates: end: 20250611
  9. DAPAGLIFLOZIN [Concomitant]
     Active Substance: DAPAGLIFLOZIN
     Route: 065
     Dates: start: 20250623
  10. MOUNJARO [Concomitant]
     Active Substance: TIRZEPATIDE
     Route: 065
     Dates: end: 20250611
  11. MOUNJARO [Concomitant]
     Active Substance: TIRZEPATIDE
     Route: 065
     Dates: start: 20250623

REACTIONS (6)
  - Decreased appetite [Recovering/Resolving]
  - Condition aggravated [Recovering/Resolving]
  - Azotaemia [Unknown]
  - Hypercreatininaemia [Unknown]
  - Leukopenia [Recovering/Resolving]
  - Malaise [Recovering/Resolving]

NARRATIVE: CASE EVENT DATE: 20250606
